APPROVED DRUG PRODUCT: PACLITAXEL
Active Ingredient: PACLITAXEL
Strength: 100MG/VIAL
Dosage Form/Route: POWDER;INTRAVENOUS
Application: A217877 | Product #001 | TE Code: AB
Applicant: MYLAN PHARMACEUTICALS INC
Approved: Aug 19, 2025 | RLD: No | RS: No | Type: RX